FAERS Safety Report 8291198-6 (Version None)
Quarter: 2012Q2

REPORT INFORMATION
  Report Type: 
  Country: None (occurrence: None)
  Receive Date: 20120417
  Receipt Date: 20120410
  Transmission Date: 20120825
  Serious: Yes (Hospitalization)
  Sender: FDA-Public Use
  Company Number: US-UCBSA-053636

PATIENT
  Age: 64 Year
  Sex: Male
  Weight: 88.9 kg

DRUGS (8)
  1. CIMZIA [Suspect]
     Indication: CROHN'S DISEASE
     Route: 058
     Dates: start: 20110509
  2. ZOSYN [Concomitant]
     Indication: CROHN'S DISEASE
     Dates: start: 20110809, end: 20110812
  3. CIMZIA [Suspect]
     Route: 058
     Dates: start: 20100429, end: 20110307
  4. ZOSYN [Concomitant]
     Dosage: 1 GRAM IV
     Route: 042
     Dates: start: 20111228, end: 20120102
  5. FLAGYL [Concomitant]
     Indication: CROHN'S DISEASE
     Dates: start: 20100331
  6. FLAGYL [Concomitant]
     Dates: start: 20111228, end: 20120112
  7. CIMZIA [Suspect]
     Route: 058
     Dates: start: 20110404, end: 20110404
  8. IBUPROFEN [Concomitant]
     Indication: CROHN'S DISEASE

REACTIONS (2)
  - ANAL FISTULA [None]
  - CELLULITIS [None]
